FAERS Safety Report 16615531 (Version 2)
Quarter: 2019Q3

REPORT INFORMATION
  Report Type: Spontaneous
  Country: US (occurrence: US)
  Receive Date: 20190723
  Receipt Date: 20190826
  Transmission Date: 20191004
  Serious: No
  Sender: FDA-Public Use
  Company Number: US-BAYER-2019-134991

PATIENT
  Age: 87 Year
  Sex: Female

DRUGS (10)
  1. MIRALAX [Suspect]
     Active Substance: POLYETHYLENE GLYCOL 3350
     Indication: GASTROINTESTINAL DISORDER
     Dosage: UNK
     Route: 048
     Dates: start: 20190714, end: 20190716
  2. GABAPENTIN. [Concomitant]
     Active Substance: GABAPENTIN
  3. PANTOPRAZOLE [Concomitant]
     Active Substance: PANTOPRAZOLE
  4. LEVOCETIRIZINE [Concomitant]
     Active Substance: LEVOCETIRIZINE
  5. TYLENOL [Concomitant]
     Active Substance: ACETAMINOPHEN
  6. ELIQUIS [Concomitant]
     Active Substance: APIXABAN
  7. TOPIRAMATE. [Concomitant]
     Active Substance: TOPIRAMATE
  8. ASCORBIC ACID. [Concomitant]
     Active Substance: ASCORBIC ACID
  9. TRAZODONE [Concomitant]
     Active Substance: TRAZODONE HYDROCHLORIDE
  10. DIPHENHYDRAMINE HYDROCHLORIDE. [Concomitant]
     Active Substance: DIPHENHYDRAMINE HYDROCHLORIDE

REACTIONS (2)
  - Urinary tract infection [Not Recovered/Not Resolved]
  - Confusional state [None]
